FAERS Safety Report 15340185 (Version 6)
Quarter: 2019Q1

REPORT INFORMATION
  Report Type: Report from Study
  Country: CN (occurrence: CN)
  Receive Date: 20180831
  Receipt Date: 20190222
  Transmission Date: 20190417
  Serious: Yes (Hospitalization)
  Sender: FDA-Public Use
  Company Number: CN-TAKEDA-2018TUS025711

PATIENT
  Age: 37 Year
  Sex: Male
  Weight: 48 kg

DRUGS (4)
  1. AZATHIOPRINE. [Concomitant]
     Active Substance: AZATHIOPRINE
     Indication: CROHN^S DISEASE
     Dosage: 50 MG, QD
     Route: 048
     Dates: start: 20180416, end: 20180823
  2. ENSURE [Concomitant]
     Active Substance: AMINO ACIDS\DEXTROSE\ELECTROLYTES NOS\SOYBEAN OIL\VITAMINS
     Dosage: 400 GRAM, QD
     Route: 048
     Dates: start: 20180904
  3. VEDOLIZUMAB [Suspect]
     Active Substance: VEDOLIZUMAB
     Indication: CROHN^S DISEASE
     Dosage: 300 MG, UNK
     Route: 042
     Dates: start: 20180508
  4. ENSURE [Concomitant]
     Active Substance: AMINO ACIDS\DEXTROSE\ELECTROLYTES NOS\SOYBEAN OIL\VITAMINS
     Indication: SUPPLEMENTATION THERAPY
     Dosage: UNK
     Route: 048
     Dates: start: 201710, end: 20180903

REACTIONS (1)
  - Liver abscess [Recovered/Resolved]

NARRATIVE: CASE EVENT DATE: 20180802
